FAERS Safety Report 9592507 (Version 1)
Quarter: 2013Q4

REPORT INFORMATION
  Report Type: Spontaneous
  Country: US (occurrence: None)
  Receive Date: 20131003
  Receipt Date: 20131003
  Transmission Date: 20140711
  Serious: Yes (Hospitalization)
  Sender: FDA-Public Use
  Company Number: None

PATIENT
  Age: 55 Year
  Sex: Female
  Weight: 76.2 kg

DRUGS (10)
  1. VICTOZA [Suspect]
     Indication: TYPE 2 DIABETES MELLITUS
     Route: 058
  2. FERROCITE [Concomitant]
  3. LUNESTA [Concomitant]
  4. INSULIN GLARGINE [Concomitant]
  5. JINTELI [Concomitant]
  6. GABAPENTIN [Concomitant]
  7. TRAMADOL [Concomitant]
  8. VITAMIN D3 [Concomitant]
  9. CALCIUM-VITAMIN D [Concomitant]
  10. CENTRUM [Concomitant]

REACTIONS (3)
  - Cholecystitis [None]
  - Pancreatitis [None]
  - Pain [None]
